FAERS Safety Report 7605545-9 (Version None)
Quarter: 2011Q3

REPORT INFORMATION
  Report Type: 
  Country: None (occurrence: None)
  Receive Date: 20110712
  Receipt Date: 20110712
  Transmission Date: 20111222
  Serious: Yes (Life-Threatening)
  Sender: FDA-Public Use
  Company Number: None

PATIENT
  Age: 63 Year
  Sex: Male
  Weight: 63.96 kg

DRUGS (1)
  1. ETOMIDATE [Suspect]
     Dates: start: 20110328, end: 20110328

REACTIONS (1)
  - ANAPHYLACTIC REACTION [None]
